FAERS Safety Report 8565074-5 (Version None)
Quarter: 2012Q3

REPORT INFORMATION
  Report Type: 
  Country: None (occurrence: None)
  Receive Date: 20120803
  Receipt Date: 20120522
  Transmission Date: 20120928
  Serious: Yes (Other)
  Sender: FDA-Public Use
  Company Number: JP-009507513-2012SP003727

PATIENT

DRUGS (38)
  1. REBETOL [Suspect]
     Dosage: 200 MG, ONCE
     Route: 048
     Dates: start: 20120213, end: 20120318
  2. INVESTIGATIONAL DRUG (UNSPECIFIED) [Suspect]
     Dosage: 1500 MG, UNK
     Route: 048
     Dates: start: 20120120, end: 20120318
  3. CLARITIN REDITABS [Concomitant]
     Indication: PROPHYLAXIS
     Dosage: 10 MG, UNK
     Route: 048
  4. EPADEL [Concomitant]
     Dosage: 1800 MG, ONCE
     Route: 048
  5. LIVALO [Concomitant]
     Dosage: 2 MG, ONCE
     Route: 048
     Dates: start: 20120206, end: 20120325
  6. EPADEL S [Concomitant]
     Indication: HYPERLIPIDAEMIA
     Dosage: 1800 MG, ONCE
     Route: 048
     Dates: end: 20120325
  7. ETIZOLAM [Concomitant]
     Dosage: 2 MG, ONCE
     Route: 048
  8. PEGINTERFERON ALFA-2B [Suspect]
     Dosage: 1.3 ?G/KG, QW
     Route: 058
     Dates: start: 20120220
  9. INVESTIGATIONAL DRUG (UNSPECIFIED) [Suspect]
     Indication: HEPATITIS C
     Dosage: 2250 MG, UNK
     Route: 048
     Dates: start: 20120111, end: 20120113
  10. ZOLPIDEM [Concomitant]
     Indication: INSOMNIA
     Dosage: 5 MG, ONCE
     Route: 048
  11. PEGINTERFERON ALFA-2B [Suspect]
     Indication: HEPATITIS C
     Dosage: 1.5 ?G/KG, QW
     Route: 058
     Dates: start: 20120111, end: 20120213
  12. PEGINTERFERON ALFA-2B [Suspect]
     Dosage: 1.5 ?G/KG, QW
     Route: 058
     Dates: start: 20120402
  13. PEG-INTRON [Suspect]
     Indication: HEPATITIS C
     Dosage: 1.5MCG/KG/WEEK
     Route: 058
     Dates: start: 20120111, end: 20120213
  14. PEG-INTRON [Suspect]
     Dosage: 1.5MCG/KG/WEEK
     Route: 058
     Dates: end: 20120319
  15. LIVALO [Concomitant]
     Indication: HYPERLIPIDAEMIA
     Dosage: 2 MG, ONCE
     Route: 048
     Dates: end: 20120113
  16. REBETOL [Suspect]
     Dosage: 200 MG, QD
     Route: 048
     Dates: start: 20120213
  17. PEG-INTRON [Suspect]
     Dosage: 1.3MCG/KG/WEEK
     Route: 058
     Dates: start: 20120220
  18. PITAVASTATIN CALCIUM [Concomitant]
     Dosage: 2 MG, UNK
     Route: 048
     Dates: start: 20120206
  19. ETIZOLAM [Concomitant]
     Indication: INSOMNIA
     Dosage: 1 MG, ONCE
     Route: 048
  20. PEGINTERFERON ALFA-2B [Suspect]
     Dosage: 1.5 ?G/KG, QW
     Route: 058
     Dates: end: 20120319
  21. REBETOL [Suspect]
     Dosage: 400 MG, QD
     Route: 048
     Dates: start: 20120206, end: 20120212
  22. REBETOL [Suspect]
     Dosage: 200 MG, ONCE
     Route: 048
     Dates: start: 20120528, end: 20120625
  23. TELAVIC [Suspect]
     Dosage: 1500 MG, ONCE
     Route: 048
     Dates: start: 20120120, end: 20120318
  24. PITAVASTATIN CALCIUM [Concomitant]
     Indication: HYPERLIPIDAEMIA
     Dosage: 2 MG, UNK
     Route: 048
     Dates: end: 20120113
  25. DEPAS [Concomitant]
     Indication: INSOMNIA
     Dosage: 0.5 MG, UNK
     Route: 048
  26. REBETOL [Suspect]
     Dosage: 400 MG, ONCE
     Route: 048
     Dates: start: 20120522, end: 20120527
  27. TELAVIC [Suspect]
     Indication: HEPATITIS C
     Dosage: 2250 MG, ONCE
     Route: 048
     Dates: start: 20120111, end: 20120113
  28. PEG-INTRON [Suspect]
     Dosage: 1.5MCG/KG/WEEK
     Route: 058
     Dates: start: 20120402, end: 20120625
  29. SODIUM FERROUS CITRATE [Concomitant]
     Indication: IRON DEFICIENCY ANAEMIA
     Dosage: 100 MG, UNK
     Route: 048
  30. FEROTYM [Concomitant]
     Indication: IRON DEFICIENCY ANAEMIA
     Dosage: 100 MG, ONCE
     Route: 048
  31. NIZATIDINE [Concomitant]
     Indication: GASTRIC ULCER
     Dosage: 300 MG, ONCE
     Route: 048
  32. REBETOL [Suspect]
     Indication: HEPATITIS C
     Dosage: 800 MG, QD
     Route: 048
     Dates: start: 20120111, end: 20120205
  33. REBETOL [Suspect]
     Dosage: 200 MG, ONCE
     Route: 048
     Dates: start: 20120416, end: 20120521
  34. CLARITIN REDITABS [Concomitant]
     Dosage: 10 MG, ONCE
     Route: 048
  35. DEPAS [Concomitant]
     Dosage: 0.5 MG, ONCE
     Route: 048
  36. EPADEL [Concomitant]
     Indication: HYPERLIPIDAEMIA
     Dosage: 1800 MG, UNK
     Route: 048
  37. LIVALO [Concomitant]
     Dosage: 2 MG, ONCE
     Route: 048
  38. NIZATIDINE [Concomitant]
     Indication: GASTRITIS
     Dosage: 150 MG, ONCE
     Route: 048
     Dates: start: 20120227

REACTIONS (2)
  - RENAL DISORDER [None]
  - ANAEMIA [None]
